FAERS Safety Report 13842992 (Version 5)
Quarter: 2020Q2

REPORT INFORMATION
  Report Type: Report from Study
  Country: US (occurrence: US)
  Receive Date: 20170808
  Receipt Date: 20200511
  Transmission Date: 20200713
  Serious: Yes (Hospitalization)
  Sender: FDA-Public Use
  Company Number: PHHY2017US115864

PATIENT
  Age: 37 Year
  Sex: Male
  Weight: 77.1 kg

DRUGS (5)
  1. GILENYA [Suspect]
     Active Substance: FINGOLIMOD HYDROCHLORIDE
     Indication: RELAPSING-REMITTING MULTIPLE SCLEROSIS
     Dosage: 0.5 MG, QD
     Route: 048
     Dates: start: 20170221
  2. PROVIGIL [Concomitant]
     Active Substance: MODAFINIL
     Indication: FATIGUE
     Dosage: 200 MG, QD
     Route: 065
     Dates: start: 20170428
  3. PROVIGIL [Concomitant]
     Active Substance: MODAFINIL
     Dosage: 200 MG, BID
     Route: 065
  4. GILENYA [Suspect]
     Active Substance: FINGOLIMOD HYDROCHLORIDE
     Dosage: 0.5 MG/KG, QD
     Route: 048
     Dates: start: 20170301
  5. LISINOPRIL. [Concomitant]
     Active Substance: LISINOPRIL
     Indication: HYPERTENSION
     Dosage: 10 MG, QD
     Route: 065
     Dates: start: 2015

REACTIONS (12)
  - Muscle spasms [Unknown]
  - Dysphagia [Unknown]
  - Nasal discomfort [Unknown]
  - Pain [Recovering/Resolving]
  - Muscular weakness [Recovering/Resolving]
  - Blood glucose increased [Unknown]
  - Hyperglycaemia [Recovering/Resolving]
  - Computerised tomogram abnormal [Recovering/Resolving]
  - Multiple sclerosis relapse [Recovering/Resolving]
  - White blood cell count decreased [Unknown]
  - Alanine aminotransferase increased [Unknown]
  - Gait inability [Unknown]

NARRATIVE: CASE EVENT DATE: 20170706
